FAERS Safety Report 11927239 (Version 1)
Quarter: 2016Q1

REPORT INFORMATION
  Report Type: Spontaneous
  Country: CZ (occurrence: CZ)
  Receive Date: 20160119
  Receipt Date: 20160119
  Transmission Date: 20160526
  Serious: Yes (Death, Life-Threatening, Other)
  Sender: FDA-Public Use
  Company Number: CZ-HQ SPECIALTY-CZ-2016INT000008

PATIENT
  Age: 30 Year
  Sex: Female

DRUGS (1)
  1. CISPLATIN. [Suspect]
     Active Substance: CISPLATIN
     Indication: ADENOCARCINOMA OF THE CERVIX
     Dosage: 40 MG/M2, WEEKLY, 2 CYCLES

REACTIONS (17)
  - Toxicity to various agents [Unknown]
  - Short-bowel syndrome [Unknown]
  - Immobile [Unknown]
  - Nausea [Unknown]
  - Thrombocytopenia [Unknown]
  - Urogenital fistula [Unknown]
  - Fistula of small intestine [Unknown]
  - Alopecia [Unknown]
  - Drug hypersensitivity [Fatal]
  - Neutropenia [Unknown]
  - Depression [Unknown]
  - Anaemia [Unknown]
  - Pancytopenia [Unknown]
  - Vaginal haemorrhage [Unknown]
  - Cachexia [Unknown]
  - Malnutrition [Unknown]
  - Diarrhoea [Unknown]
